FAERS Safety Report 16252855 (Version 1)
Quarter: 2019Q2

REPORT INFORMATION
  Report Type: Spontaneous
  Country: US (occurrence: US)
  Receive Date: 20190326
  Receipt Date: 20190326
  Transmission Date: 20190711
  Serious: Yes (Other)
  Sender: FDA-Public Use
  Company Number: None

PATIENT
  Age: 72 Year
  Sex: Female
  Weight: 68.04 kg

DRUGS (11)
  1. ADVIL [Concomitant]
     Active Substance: IBUPROFEN
  2. METOPROLOL. [Concomitant]
     Active Substance: METOPROLOL
  3. ESTRADIOL. [Concomitant]
     Active Substance: ESTRADIOL
  4. MEDROXYPROGESTERONE [Suspect]
     Active Substance: MEDROXYPROGESTERONE
  5. CENTRUM SILVER [Concomitant]
     Active Substance: MINERALS\VITAMINS
  6. FLONASE [Concomitant]
     Active Substance: FLUTICASONE PROPIONATE
  7. GABAPENTIN. [Concomitant]
     Active Substance: GABAPENTIN
  8. VIT D [Concomitant]
     Active Substance: VITAMIN D NOS
  9. MELOXICAM. [Suspect]
     Active Substance: MELOXICAM
     Indication: BURSITIS
     Dosage: ?          QUANTITY:15 MG MILLIGRAM(S);?
     Route: 048
     Dates: start: 20190222, end: 20190223
  10. LEVOTHYROXINE. [Concomitant]
     Active Substance: LEVOTHYROXINE
  11. PSEUDOPHED [Concomitant]

REACTIONS (6)
  - Nausea [None]
  - Heart rate irregular [None]
  - Dizziness [None]
  - Blood pressure increased [None]
  - Heart rate increased [None]
  - Flushing [None]

NARRATIVE: CASE EVENT DATE: 20190223
